FAERS Safety Report 12160564 (Version 2)
Quarter: 2016Q2

REPORT INFORMATION
  Report Type: Spontaneous
  Country: IL (occurrence: IL)
  Receive Date: 20160308
  Receipt Date: 20160406
  Transmission Date: 20160815
  Serious: Yes (Hospitalization, Other)
  Sender: FDA-Public Use
  Company Number: IL-TEVA-637650ISR

PATIENT
  Age: 67 Year
  Sex: Female

DRUGS (3)
  1. FORTUM 1GR [Suspect]
     Active Substance: CEFTAZIDIME
     Indication: INFECTION
     Route: 058
     Dates: start: 201602, end: 201602
  2. CEFTAZIDIME 1GR [Suspect]
     Active Substance: CEFTAZIDIME
     Indication: INFECTION
     Route: 058
     Dates: start: 201602, end: 201602
  3. VANCO TEVA 500 MG [Suspect]
     Active Substance: VANCOMYCIN
     Indication: INFECTION
     Route: 058
     Dates: start: 201602, end: 201602

REACTIONS (11)
  - Rash erythematous [Recovered/Resolved with Sequelae]
  - Dry skin [Not Recovered/Not Resolved]
  - Skin exfoliation [Not Recovered/Not Resolved]
  - Lip swelling [Recovered/Resolved]
  - Rash [Recovered/Resolved with Sequelae]
  - Swelling face [Recovered/Resolved]
  - Chills [Recovered/Resolved]
  - Nausea [Recovered/Resolved]
  - Pruritus [Recovering/Resolving]
  - Malaise [Recovered/Resolved]
  - Pain [Not Recovered/Not Resolved]

NARRATIVE: CASE EVENT DATE: 201602
